FAERS Safety Report 8205417-5 (Version None)
Quarter: 2012Q1

REPORT INFORMATION
  Report Type: 
  Country: None (occurrence: None)
  Receive Date: 20120313
  Receipt Date: 20120301
  Transmission Date: 20120608
  Serious: Yes (Other)
  Sender: FDA-Public Use
  Company Number: FR-SANOFI-AVENTIS-2012SA013857

PATIENT
  Age: 72 Year
  Sex: Male

DRUGS (3)
  1. ACETAMINOPHEN [Concomitant]
  2. SOTALOL HCL [Concomitant]
  3. ELOXATIN [Suspect]
     Indication: COLON CANCER
     Route: 042
     Dates: end: 20110701

REACTIONS (1)
  - CHOLESTASIS [None]
